FAERS Safety Report 9783440 (Version 1)
Quarter: 2013Q4

REPORT INFORMATION
  Report Type: Spontaneous
  Country: GB (occurrence: GB)
  Receive Date: 20131226
  Receipt Date: 20131226
  Transmission Date: 20140711
  Serious: Yes (Other)
  Sender: FDA-Public Use
  Company Number: GB-PFIZER INC-2013365774

PATIENT
  Age: 2 Decade
  Sex: Female

DRUGS (16)
  1. VORICONAZOLE [Suspect]
     Indication: ASPERGILLUS INFECTION
     Dosage: 175 MG, 2X/DAY
     Route: 048
     Dates: start: 20130925, end: 201310
  2. VORICONAZOLE [Suspect]
     Dosage: 150 MG, 2X/DAY
     Route: 048
     Dates: start: 201310
  3. VORICONAZOLE [Suspect]
     Dosage: 175 MG, 2X/DAY
     Route: 048
  4. TACROLIMUS [Interacting]
     Indication: LIVER TRANSPLANT
     Dosage: 0.5 MG, 1X/DAY, ALTERNATING DOSE OF 1MG/0.5MG PER DAY INITIALLY
     Route: 048
     Dates: start: 20080702
  5. TACROLIMUS [Interacting]
     Dosage: 1 MG, ALTERNATE DAY
  6. MYCOPHENOLATE MOFETIL [Interacting]
     Indication: LIVER TRANSPLANT
     Dosage: 1 G, 2X/DAY
     Route: 048
     Dates: start: 20080702
  7. RETINOL [Concomitant]
     Indication: CYSTIC FIBROSIS
  8. COLECALCIFEROL [Concomitant]
  9. ALPHA TOCOPHEROL [Concomitant]
  10. ASPIRIN [Concomitant]
  11. ACETYLCYSTEINE [Concomitant]
  12. CETIRIZINE [Concomitant]
  13. PANCREATIN [Concomitant]
  14. SALBUTAMOL [Concomitant]
     Dosage: 100 UG, UNK INHALER CFC FREE
     Route: 055
  15. BUDESONIDE/FORMOTEROL FUMARATE [Concomitant]
  16. INSULIN HUMAN [Concomitant]

REACTIONS (6)
  - Potentiating drug interaction [Unknown]
  - Renal disorder [Unknown]
  - Stomatitis [Recovering/Resolving]
  - Skin exfoliation [Not Recovered/Not Resolved]
  - Alopecia [Not Recovered/Not Resolved]
  - Lip pain [Recovering/Resolving]
